FAERS Safety Report 10528939 (Version 1)
Quarter: 2014Q4

REPORT INFORMATION
  Report Type: Spontaneous
  Country: US (occurrence: None)
  Receive Date: 20141016
  Receipt Date: 20141016
  Transmission Date: 20150528
  Serious: No
  Sender: FDA-Public Use
  Company Number: None

PATIENT
  Age: 70 Year
  Sex: Female

DRUGS (10)
  1. LIDOCAINE (LIDODERM) [Concomitant]
  2. FENTANYL (DURAGESIC) [Concomitant]
  3. ONDANSETRON (ZOFRAN, AS HYDROCHLORIDE) [Concomitant]
  4. LOSARTAN (COZAAR) [Concomitant]
  5. AMLODIPINE (NORVASC) [Concomitant]
  6. TRAZODONE (DESYREL) [Concomitant]
  7. REVLIMID [Suspect]
     Active Substance: LENALIDOMIDE
     Indication: PLASMA CELL MYELOMA
     Dosage: DAILY 21/28D  ORALLY
     Route: 048
     Dates: start: 20130214
  8. MORPHINE CONCENTRATE (ROXANOL) [Concomitant]
  9. WARFARIN (COUMADIN) [Concomitant]
  10. DEXAMETHASONE (DECADRON) [Concomitant]

REACTIONS (3)
  - Fatigue [None]
  - Tremor [None]
  - Nausea [None]

NARRATIVE: CASE EVENT DATE: 20141010
